FAERS Safety Report 4498520-7 (Version None)
Quarter: 2004Q4

REPORT INFORMATION
  Report Type: 
  Country: None (occurrence: None)
  Receive Date: 20041105
  Receipt Date: 20041020
  Transmission Date: 20050328
  Serious: Yes (Life-Threatening, Hospitalization, Other)
  Sender: FDA-Public Use
  Company Number: 1999-DE-U0038

PATIENT
  Age: 76 Year
  Sex: Male
  Weight: 90.7 kg

DRUGS (10)
  1. PRAMIPEXOLE (PRAMIPEXOLE DIHYDROCHLORIDE) [Suspect]
     Indication: PARKINSON'S DISEASE
     Dosage: PO
     Route: 048
     Dates: start: 19970415, end: 20010711
  2. SYMMETREL [Concomitant]
  3. PSORCON (DIFLORASONE DIACETATE) [Concomitant]
  4. VOLTAREN [Concomitant]
  5. PROSCAR [Concomitant]
  6. TRENTAL [Concomitant]
  7. TAZORAC [Concomitant]
  8. CARDURA [Concomitant]
  9. ELDEPRYL [Concomitant]
  10. LODINE [Concomitant]

REACTIONS (4)
  - BASAL CELL CARCINOMA [None]
  - IMPAIRED DRIVING ABILITY [None]
  - ROAD TRAFFIC ACCIDENT [None]
  - SOMNOLENCE [None]
